FAERS Safety Report 24818775 (Version 2)
Quarter: 2025Q2

REPORT INFORMATION
  Report Type: Spontaneous
  Country: JP (occurrence: JP)
  Receive Date: 20250108
  Receipt Date: 20250515
  Transmission Date: 20250717
  Serious: Yes (Death, Hospitalization)
  Sender: MERCK SHARP & DOHME LLC
  Company Number: JP-009507513-2501USA000631

PATIENT
  Age: 77 Year
  Sex: Male

DRUGS (4)
  1. KEYTRUDA [Suspect]
     Active Substance: PEMBROLIZUMAB
     Indication: Lung squamous cell carcinoma stage IV
     Dosage: 200 MG, EVERY THREE WEEKS
     Route: 041
     Dates: start: 202406, end: 2024
  2. LUMAKRAS [Suspect]
     Active Substance: SOTORASIB
     Indication: Lung squamous cell carcinoma stage IV
     Route: 048
     Dates: start: 20240917, end: 202410
  3. ABRAXANE [Suspect]
     Active Substance: PACLITAXEL
     Indication: Lung squamous cell carcinoma stage IV
     Dosage: 100 MG/M[2], EVERY ONE WEEK
     Dates: start: 202406, end: 2024
  4. CARBOPLATIN [Suspect]
     Active Substance: CARBOPLATIN
     Indication: Lung squamous cell carcinoma stage IV
     Dosage: EVERY THREE WEEKS
     Dates: start: 202406, end: 2024

REACTIONS (2)
  - Malignant neoplasm progression [Fatal]
  - Interstitial lung disease [Recovering/Resolving]

NARRATIVE: CASE EVENT DATE: 20240101
